FAERS Safety Report 25664020 (Version 2)
Quarter: 2025Q3

REPORT INFORMATION
  Report Type: Spontaneous
  Country: None (occurrence: CA)
  Receive Date: 20250811
  Receipt Date: 20250818
  Transmission Date: 20251021
  Serious: Yes (Death, Hospitalization)
  Sender: MYLAN
  Company Number: CA-MYLANLABS-2025M1067099

PATIENT
  Age: 56 Year
  Sex: Male

DRUGS (9)
  1. REVATIO [Suspect]
     Active Substance: SILDENAFIL CITRATE
     Indication: Pulmonary arterial hypertension
     Dosage: 20 MILLIGRAM, TID (THREE TIMES A DAY)
     Dates: start: 20220208
  2. LASIX [Concomitant]
     Active Substance: FUROSEMIDE
  3. SPIRONOLACTONE [Concomitant]
     Active Substance: SPIRONOLACTONE
  4. ECHINACEA [Concomitant]
     Active Substance: ECHINACEA, UNSPECIFIED
  5. AMOXICILLIN [Concomitant]
     Active Substance: AMOXICILLIN
  6. POTASSIUM [Concomitant]
     Active Substance: POTASSIUM
  7. VITAMIN C [Concomitant]
     Active Substance: ASCORBIC ACID
  8. VITAMIN B3 [Concomitant]
     Active Substance: NIACIN
  9. VITAMIN B12 [Concomitant]
     Active Substance: CYANOCOBALAMIN

REACTIONS (2)
  - Death [Fatal]
  - Hospitalisation [Unknown]

NARRATIVE: CASE EVENT DATE: 20250806
